FAERS Safety Report 5850253-8 (Version None)
Quarter: 2008Q3

REPORT INFORMATION
  Report Type: 
  Country: None (occurrence: None)
  Receive Date: 20080819
  Receipt Date: 20080812
  Transmission Date: 20090109
  Serious: Yes (Other)
  Sender: FDA-Public Use
  Company Number: PHHY2008BR17869

PATIENT
  Age: 81 Year
  Sex: Female

DRUGS (3)
  1. EXELON [Suspect]
     Dosage: 2 MG
  2. EXELON [Suspect]
     Dosage: 4.5 MG
  3. EXELON [Suspect]
     Dosage: 6 MG, UNK
     Dates: end: 20080704

REACTIONS (6)
  - AGITATION [None]
  - ARTERIAL RUPTURE [None]
  - BLOOD IRON DECREASED [None]
  - CONFUSIONAL STATE [None]
  - INSOMNIA [None]
  - URINARY TRACT INFECTION [None]
